FAERS Safety Report 6868546-4 (Version None)
Quarter: 2010Q3

REPORT INFORMATION
  Report Type: 
  Country: None (occurrence: None)
  Receive Date: 20100722
  Receipt Date: 20080602
  Transmission Date: 20110219
  Serious: No
  Sender: FDA-Public Use
  Company Number: US-PFIZER INC-2008047250

PATIENT
  Sex: Male
  Weight: 81.65 kg

DRUGS (2)
  1. CHANTIX [Suspect]
     Indication: SMOKING CESSATION THERAPY
     Dates: start: 20070901, end: 20080529
  2. MULTI-VITAMINS [Concomitant]

REACTIONS (4)
  - EMOTIONAL DISORDER [None]
  - HEART RATE INCREASED [None]
  - NIGHT SWEATS [None]
  - WITHDRAWAL SYNDROME [None]
